FAERS Safety Report 24984905 (Version 1)
Quarter: 2025Q1

REPORT INFORMATION
  Report Type: Spontaneous
  Country: US (occurrence: US)
  Receive Date: 20250219
  Receipt Date: 20250219
  Transmission Date: 20250409
  Serious: No
  Sender: ETON PHARMACEUTICALS, INC
  Company Number: US-ETON PHARMACEUTICALS, INC-2024ETO000296

PATIENT

DRUGS (1)
  1. BETAINE [Suspect]
     Active Substance: BETAINE
     Indication: Vitamin B12 deficiency
     Route: 065

REACTIONS (3)
  - Lethargy [Unknown]
  - Gastrointestinal disorder [Unknown]
  - Off label use [Unknown]
